FAERS Safety Report 23493263 (Version 2)
Quarter: 2024Q1

REPORT INFORMATION
  Report Type: Spontaneous
  Country: JP (occurrence: JP)
  Receive Date: 20240207
  Receipt Date: 20240220
  Transmission Date: 20240410
  Serious: Yes (Other)
  Sender: FDA-Public Use
  Company Number: JP-002147023-NVSJ2024JP001715

PATIENT
  Age: 68 Year
  Sex: Female
  Weight: 34.9 kg

DRUGS (1)
  1. TISAGENLECLEUCEL [Suspect]
     Active Substance: TISAGENLECLEUCEL
     Indication: Diffuse large B-cell lymphoma
     Dosage: 2.3X10^8 CELLS
     Route: 041
     Dates: start: 20220927, end: 20220927

REACTIONS (5)
  - Myelodysplastic syndrome [Not Recovered/Not Resolved]
  - Second primary malignancy [Not Recovered/Not Resolved]
  - Anaemia [Unknown]
  - Platelet count decreased [Unknown]
  - Out of specification test results [Unknown]

NARRATIVE: CASE EVENT DATE: 20240129
